FAERS Safety Report 24747592 (Version 1)
Quarter: 2024Q4

REPORT INFORMATION
  Report Type: Spontaneous
  Country: US (occurrence: US)
  Receive Date: 20241218
  Receipt Date: 20241218
  Transmission Date: 20250115
  Serious: No
  Sender: Haleon PLC
  Company Number: US-HALEON-2215395

PATIENT
  Age: 31 Year
  Sex: Female

DRUGS (1)
  1. SENSODYNE PRONAMEL FRESH BREATH [Suspect]
     Active Substance: POTASSIUM NITRATE\SODIUM FLUORIDE
     Indication: Dental disorder prophylaxis
     Dates: start: 20241006, end: 20241130

REACTIONS (2)
  - Gingival bleeding [Recovered/Resolved]
  - Toothache [Recovered/Resolved]
